FAERS Safety Report 9902866 (Version 5)
Quarter: 2021Q1

REPORT INFORMATION
  Report Type: Report from Study
  Country: CA (occurrence: CA)
  Receive Date: 20140217
  Receipt Date: 20210323
  Transmission Date: 20210420
  Serious: Yes (Other)
  Sender: FDA-Public Use
  Company Number: PHHY2014CA014473

PATIENT
  Age: 46 Year
  Sex: Female

DRUGS (2)
  1. GILENYA [Suspect]
     Active Substance: FINGOLIMOD HYDROCHLORIDE
     Indication: RELAPSING-REMITTING MULTIPLE SCLEROSIS
     Dosage: 0.5 MG, QD
     Route: 048
     Dates: start: 20131101, end: 20170816
  2. GILENYA [Suspect]
     Active Substance: FINGOLIMOD HYDROCHLORIDE
     Indication: SECONDARY PROGRESSIVE MULTIPLE SCLEROSIS

REACTIONS (6)
  - Unresponsive to stimuli [Unknown]
  - Product use in unapproved indication [Unknown]
  - Fatigue [Unknown]
  - Expanded disability status scale score increased [Unknown]
  - Mydriasis [Unknown]
  - Ankle fracture [Not Recovered/Not Resolved]

NARRATIVE: CASE EVENT DATE: 20140107
